FAERS Safety Report 24808727 (Version 1)
Quarter: 2025Q1

REPORT INFORMATION
  Report Type: Spontaneous
  Country: US (occurrence: US)
  Receive Date: 20250106
  Receipt Date: 20250106
  Transmission Date: 20250408
  Serious: Yes (Other)
  Sender: AMGEN
  Company Number: US-AMGEN-USASP2025000023

PATIENT

DRUGS (4)
  1. ADALIMUMAB [Suspect]
     Active Substance: ADALIMUMAB
     Indication: Crohn^s disease
     Route: 065
  2. ADALIMUMAB [Suspect]
     Active Substance: ADALIMUMAB
     Indication: Colitis ulcerative
  3. INFLIXIMAB [Suspect]
     Active Substance: INFLIXIMAB
     Indication: Crohn^s disease
     Route: 065
  4. INFLIXIMAB [Suspect]
     Active Substance: INFLIXIMAB
     Indication: Colitis ulcerative

REACTIONS (13)
  - Intestinal stenosis [Unknown]
  - Necrosis [Unknown]
  - Small intestinal obstruction [Unknown]
  - Enterocutaneous fistula [Unknown]
  - Postoperative abscess [Unknown]
  - Intestinal perforation [Unknown]
  - Postoperative ileus [Unknown]
  - Electrolyte imbalance [Unknown]
  - Stoma site irritation [Unknown]
  - Stoma site infection [Unknown]
  - Gastrointestinal inflammation [Unknown]
  - Dysplasia [Unknown]
  - Therapy non-responder [Unknown]
